FAERS Safety Report 17015616 (Version 1)
Quarter: 2019Q4

REPORT INFORMATION
  Report Type: Spontaneous
  Country: US (occurrence: US)
  Receive Date: 20191003
  Receipt Date: 20191003
  Transmission Date: 20200122
  Serious: No
  Sender: FDA-Public Use
  Company Number: None

PATIENT
  Age: 46 Year
  Sex: Male

DRUGS (1)
  1. BUPROPION XL 300MG [Suspect]
     Active Substance: BUPROPION
     Indication: MAJOR DEPRESSION
     Dosage: PRIOR TO 12/23/2008??AM
     Route: 048
     Dates: end: 20081223

REACTIONS (1)
  - Agitation [None]

NARRATIVE: CASE EVENT DATE: 20081223
